FAERS Safety Report 22084897 (Version 6)
Quarter: 2024Q4

REPORT INFORMATION
  Report Type: Report from Study
  Country: DE (occurrence: DE)
  Receive Date: 20230310
  Receipt Date: 20241121
  Transmission Date: 20250114
  Serious: No
  Sender: ROCHE
  Company Number: DE-ROCHE-3088167

PATIENT
  Age: 34 Year
  Sex: Female

DRUGS (8)
  1. OCREVUS [Suspect]
     Active Substance: OCRELIZUMAB
     Indication: Relapsing-remitting multiple sclerosis
     Route: 042
     Dates: start: 20220425, end: 20220425
  2. CORTISONE [Suspect]
     Active Substance: CORTISONE
     Indication: Product used for unknown indication
     Route: 042
  3. BETAHISTINE [Concomitant]
     Active Substance: BETAHISTINE
  4. SODIUM PROPIONATE [Concomitant]
     Active Substance: SODIUM PROPIONATE
  5. OMEGA 3 [Concomitant]
     Active Substance: CAPSAICIN
  6. LEVOTHYROXINE [Concomitant]
     Active Substance: LEVOTHYROXINE
  7. LEVOTHYROXINE [Concomitant]
     Active Substance: LEVOTHYROXINE
  8. TRYPTOPHAN [Concomitant]
     Active Substance: TRYPTOPHAN

REACTIONS (14)
  - Joint swelling [Recovered/Resolved]
  - Haematoma [Recovered/Resolved]
  - Headache [Recovered/Resolved]
  - Neck pain [Recovered/Resolved]
  - Feeling hot [Recovered/Resolved]
  - Energy increased [Recovered/Resolved]
  - Thyroid disorder [Recovering/Resolving]
  - Dyspnoea [Recovered/Resolved]
  - Abdominal pain [Recovered/Resolved]
  - Haemorrhage [Recovered/Resolved]
  - Hepatic steatosis [Not Recovered/Not Resolved]
  - COVID-19 [Recovered/Resolved]
  - Nasopharyngitis [Recovered/Resolved]
  - Human papilloma virus test positive [Not Recovered/Not Resolved]

NARRATIVE: CASE EVENT DATE: 20220425
